FAERS Safety Report 10263194 (Version 2)
Quarter: 2014Q2

REPORT INFORMATION
  Report Type: Report from Study
  Country: US (occurrence: US)
  Receive Date: 20140626
  Receipt Date: 20140626
  Transmission Date: 20141212
  Serious: Yes (Death)
  Sender: FDA-Public Use
  Company Number: US-MYLANLABS-2014S1005971

PATIENT
  Age: 58 Year
  Sex: Female

DRUGS (9)
  1. CLOZAPINE TABLETS [Suspect]
     Route: 048
     Dates: start: 200902, end: 201402
  2. GABAPENTIN [Concomitant]
  3. QUETIAPINE [Concomitant]
  4. VENLAFAXINE [Concomitant]
     Dosage: EXTENDED RELEASE 150MG AND 75MG
  5. SIMVASTATIN [Concomitant]
  6. ROPINIROLE [Concomitant]
  7. RANITIDINE [Concomitant]
  8. POTASSIUM [Concomitant]
     Dosage: EXTENDED RELEASE
  9. OMEPRAZOLE [Concomitant]

REACTIONS (1)
  - Death [Fatal]
